FAERS Safety Report 11865687 (Version 1)
Quarter: 2015Q4

REPORT INFORMATION
  Report Type: Spontaneous
  Country: FR (occurrence: FR)
  Receive Date: 20151223
  Receipt Date: 20151223
  Transmission Date: 20160305
  Serious: Yes (Hospitalization, Other)
  Sender: FDA-Public Use
  Company Number: FR-PFIZER INC-2015457217

PATIENT
  Age: 20 Year
  Sex: Male

DRUGS (9)
  1. RIVOTRIL [Suspect]
     Active Substance: CLONAZEPAM
     Indication: STATUS EPILEPTICUS
     Dosage: 1 MG (1 DF), SINGLE
     Route: 042
     Dates: start: 20150816, end: 20150816
  2. PRODILANTIN [Suspect]
     Active Substance: FOSPHENYTOIN SODIUM
     Indication: STATUS EPILEPTICUS
     Dosage: 900 MG, SINGLE
     Route: 042
     Dates: start: 20150816, end: 20150816
  3. MICROPAKINE [Concomitant]
     Active Substance: VALPROIC ACID
     Dosage: 1 G, 2X/DAY
     Dates: start: 20150816
  4. RIFATER [Concomitant]
     Active Substance: ISONIAZID\PYRAZINAMIDE\RIFAMPIN
     Dosage: UNK
     Dates: start: 20150824
  5. GARDENAL [Suspect]
     Active Substance: PHENOBARBITAL
     Indication: STATUS EPILEPTICUS
     Dosage: 900 MG, SINGLE
     Route: 042
     Dates: start: 20150816, end: 20150816
  6. ETHAMBUTOL [Concomitant]
     Active Substance: ETHAMBUTOL HYDROCHLORIDE
     Dosage: UNK
     Dates: start: 20150824
  7. RIFATER [Concomitant]
     Active Substance: ISONIAZID\PYRAZINAMIDE\RIFAMPIN
     Indication: TUBERCULOSIS
     Dosage: UNK
     Dates: start: 20150806, end: 20150816
  8. MICROPAKINE [Concomitant]
     Active Substance: VALPROIC ACID
     Dosage: 750 MG, 2X/DAY
  9. ETHAMBUTOL [Concomitant]
     Active Substance: ETHAMBUTOL HYDROCHLORIDE
     Indication: TUBERCULOSIS
     Dosage: UNK
     Dates: start: 20150806, end: 20150816

REACTIONS (7)
  - Clonic convulsion [Unknown]
  - Rash papular [Recovered/Resolved]
  - Hepatocellular injury [Recovering/Resolving]
  - Hepatitis acute [Recovering/Resolving]
  - Condition aggravated [Recovered/Resolved]
  - Rash [Recovered/Resolved]
  - Pruritus [Recovered/Resolved]

NARRATIVE: CASE EVENT DATE: 20150816
